FAERS Safety Report 5382427-7 (Version None)
Quarter: 2007Q2

REPORT INFORMATION
  Report Type: 
  Country: None (occurrence: None)
  Receive Date: 20070629
  Receipt Date: 20060706
  Transmission Date: 20071010
  Serious: Yes (Hospitalization)
  Sender: FDA-Public Use
  Company Number: VISP-PR-0606S-0434

PATIENT
  Age: 84 Year
  Sex: Female

DRUGS (2)
  1. VISIPAQUE [Suspect]
     Indication: PAIN IN EXTREMITY
     Dosage: 185 ML, SINGLE DOSE, I.A.
     Route: 013
     Dates: start: 20060630, end: 20060630
  2. LASIX [Concomitant]

REACTIONS (6)
  - CHEST PAIN [None]
  - HYPERHIDROSIS [None]
  - HYPOTENSION [None]
  - NECK PAIN [None]
  - PALLOR [None]
  - PULMONARY OEDEMA [None]
